FAERS Safety Report 4337495-8 (Version None)
Quarter: 2004Q2

REPORT INFORMATION
  Report Type: 
  Country: None (occurrence: None)
  Receive Date: 20040412
  Receipt Date: 20040412
  Transmission Date: 20050107
  Serious: Yes (Life-Threatening, Hospitalization)
  Sender: FDA-Public Use
  Company Number: None

PATIENT
  Age: 45 Year
  Sex: Female
  Weight: 104 kg

DRUGS (3)
  1. ZYPREXA [Suspect]
     Indication: SCHIZOAFFECTIVE DISORDER
     Dosage: 1 HS
     Dates: start: 20030926, end: 20040404
  2. ATIVAN [Concomitant]
  3. RESTORIL [Concomitant]

REACTIONS (3)
  - CHOLELITHIASIS [None]
  - DIABETIC HYPEROSMOLAR COMA [None]
  - PANCREATITIS [None]
